FAERS Safety Report 14573300 (Version 1)
Quarter: 2018Q1

REPORT INFORMATION
  Report Type: Spontaneous
  Country: IN (occurrence: IN)
  Receive Date: 20180226
  Receipt Date: 20180226
  Transmission Date: 20180509
  Serious: Yes (Other)
  Sender: FDA-Public Use
  Company Number: IN-IMPAX LABORATORIES, INC-2018-IPXL-00535

PATIENT
  Age: 77 Year
  Sex: Male

DRUGS (1)
  1. ADRENACLICK [Suspect]
     Active Substance: EPINEPHRINE
     Indication: DUODENAL ULCER HAEMORRHAGE
     Dosage: 1:10,000 UP TO APPROXIMATELY 20ML
     Route: 065

REACTIONS (2)
  - Traumatic haematoma [Recovered/Resolved]
  - Drug ineffective [Unknown]
